FAERS Safety Report 23784945 (Version 2)
Quarter: 2024Q2

REPORT INFORMATION
  Report Type: Spontaneous
  Country: PL (occurrence: PL)
  Receive Date: 20240425
  Receipt Date: 20240520
  Transmission Date: 20240715
  Serious: Yes (Other)
  Sender: FDA-Public Use
  Company Number: PL-TEVA-VS-3186717

PATIENT
  Age: 45 Year
  Sex: Male

DRUGS (5)
  1. CYCLOSPORINE [Suspect]
     Active Substance: CYCLOSPORINE
     Indication: Felty^s syndrome
     Route: 065
     Dates: start: 201907
  2. METHOTREXATE [Suspect]
     Active Substance: METHOTREXATE
     Indication: Felty^s syndrome
     Route: 065
     Dates: start: 201908
  3. PREDNISONE [Suspect]
     Active Substance: PREDNISONE
     Indication: Felty^s syndrome
     Route: 065
  4. HYDROXYCHLOROQUINE [Suspect]
     Active Substance: HYDROXYCHLOROQUINE
     Indication: Felty^s syndrome
     Route: 065
  5. ETANERCEPT [Suspect]
     Active Substance: ETANERCEPT
     Indication: Felty^s syndrome
     Route: 065

REACTIONS (2)
  - Thrombocytopenia [Recovered/Resolved]
  - Drug ineffective [Unknown]
